FAERS Safety Report 6029928-6 (Version None)
Quarter: 2008Q4

REPORT INFORMATION
  Report Type: 
  Country: None (occurrence: None)
  Receive Date: 20081222
  Receipt Date: 20080908
  Transmission Date: 20090506
  Serious: Yes (Other)
  Sender: FDA-Public Use
  Company Number: US-WYE-H05944208

PATIENT
  Age: 64 Year
  Sex: Female
  Weight: 65.38 kg

DRUGS (1)
  1. PRISTIQ [Suspect]
     Indication: DEPRESSION
     Dosage: 50 MG, UNSPECIFIED FREQUENCY
     Dates: start: 20080815, end: 20080903

REACTIONS (2)
  - BRONCHITIS [None]
  - CHEST DISCOMFORT [None]
